FAERS Safety Report 5270347-8 (Version None)
Quarter: 2007Q1

REPORT INFORMATION
  Report Type: 
  Country: None (occurrence: None)
  Receive Date: 20070320
  Receipt Date: 20070308
  Transmission Date: 20070707
  Serious: Yes (Death, Other)
  Sender: FDA-Public Use
  Company Number: US-PFIZER INC-2007001346

PATIENT
  Sex: Male
  Weight: 72.6 kg

DRUGS (11)
  1. GEODON [Suspect]
     Indication: BIPOLAR II DISORDER
  2. GEODON [Suspect]
     Indication: MANIA
  3. GEODON [Suspect]
     Indication: DEPRESSION
  4. GEODON [Suspect]
     Indication: PSYCHOTIC DISORDER
  5. LEXAPRO [Suspect]
     Indication: PANIC ATTACK
  6. LEXAPRO [Suspect]
     Indication: GENERALISED ANXIETY DISORDER
  7. LEXAPRO [Suspect]
     Indication: BIPOLAR II DISORDER
  8. LEXAPRO [Suspect]
     Indication: SOCIAL PROBLEM
  9. LYRICA [Concomitant]
     Indication: PAIN
  10. ESGIC [Concomitant]
  11. GLUCOPHAGE [Concomitant]
     Indication: DIABETES MELLITUS

REACTIONS (4)
  - ALCOHOLISM [None]
  - CARDIAC ARREST [None]
  - LETHARGY [None]
  - SOMNOLENCE [None]
